FAERS Safety Report 10394988 (Version 1)
Quarter: 2014Q3

REPORT INFORMATION
  Report Type: Spontaneous
  Country: US (occurrence: None)
  Receive Date: 20140815
  Receipt Date: 20140815
  Transmission Date: 20150326
  Serious: Yes (Hospitalization)
  Sender: FDA-Public Use
  Company Number: None

PATIENT
  Age: 88 Year
  Sex: Female
  Weight: 60.6 kg

DRUGS (11)
  1. HYZAAR [Concomitant]
     Active Substance: HYDROCHLOROTHIAZIDE\LOSARTAN POTASSIUM
  2. XARELTO [Concomitant]
     Active Substance: RIVAROXABAN
  3. DONEPEZIL [Concomitant]
     Active Substance: DONEPEZIL
  4. XARELTO [Suspect]
     Active Substance: RIVAROXABAN
     Indication: CEREBROVASCULAR ACCIDENT PROPHYLAXIS
     Route: 048
  5. ASPIRIN. [Concomitant]
     Active Substance: ASPIRIN
  6. ATORVASTATIN [Concomitant]
     Active Substance: ATORVASTATIN
  7. BISACODYL. [Concomitant]
     Active Substance: BISACODYL
  8. METOPROLOL [Concomitant]
     Active Substance: METOPROLOL
  9. ALPRAZOLAM. [Concomitant]
     Active Substance: ALPRAZOLAM
  10. DOCUSATE [Concomitant]
     Active Substance: DOCUSATE
  11. KCL [Concomitant]
     Active Substance: POTASSIUM CHLORIDE

REACTIONS (4)
  - Embolic stroke [None]
  - Mental status changes [None]
  - Cerebral infarction [None]
  - Ischaemic stroke [None]

NARRATIVE: CASE EVENT DATE: 20140812
